FAERS Safety Report 21944907 (Version 1)
Quarter: 2023Q1

REPORT INFORMATION
  Report Type: Spontaneous
  Country: US (occurrence: None)
  Receive Date: 20230201
  Receipt Date: 20230201
  Transmission Date: 20230417
  Serious: No
  Sender: FDA-Public Use
  Company Number: None

PATIENT
  Age: 63 Year
  Sex: Male

DRUGS (9)
  1. XTANDI [Suspect]
     Active Substance: ENZALUTAMIDE
     Indication: Prostate cancer
     Dosage: FREQUENCY : DAILY;?
     Route: 048
     Dates: start: 20230125
  2. ASPIRIN [Concomitant]
     Active Substance: ASPIRIN
     Dates: start: 20230123
  3. ATORVASTATIN [Concomitant]
     Active Substance: ATORVASTATIN
     Dates: start: 20230120
  4. BICALUTAMIDE [Concomitant]
     Active Substance: BICALUTAMIDE
     Dates: start: 20230120
  5. CARVEDILOL [Concomitant]
     Active Substance: CARVEDILOL
     Dates: start: 20230120
  6. GLIMEPIRIDE [Concomitant]
     Active Substance: GLIMEPIRIDE
     Dates: start: 20230120
  7. METFORMIN [Concomitant]
     Active Substance: METFORMIN HYDROCHLORIDE
     Dates: start: 20230120
  8. METHOCARBAMOL [Concomitant]
     Active Substance: METHOCARBAMOL
     Dates: start: 20230120
  9. METOPROLOL [Concomitant]
     Active Substance: METOPROLOL
     Dates: start: 20230120

REACTIONS (1)
  - Hot flush [None]

NARRATIVE: CASE EVENT DATE: 20230201
